FAERS Safety Report 17870028 (Version 4)
Quarter: 2021Q1

REPORT INFORMATION
  Report Type: Report from Study
  Country: US (occurrence: US)
  Receive Date: 20200608
  Receipt Date: 20210226
  Transmission Date: 20210419
  Serious: Yes (Hospitalization, Other)
  Sender: FDA-Public Use
  Company Number: US-ACADIA PHARMACEUTICALS INC.-ACA-2020-PIM-001610

PATIENT
  Age: 82 Year
  Sex: Male

DRUGS (9)
  1. NUPLAZID [Suspect]
     Active Substance: PIMAVANSERIN TARTRATE
     Indication: DELUSION
     Dosage: 34 MILLIGRAM, QD EVERY MORNING
     Route: 048
     Dates: start: 20201205
  2. CARBIDOPA/LEVODOPA [Concomitant]
     Active Substance: CARBIDOPA\LEVODOPA
  3. GABAPENTINE [Concomitant]
     Active Substance: GABAPENTIN
  4. MEMANTINE. [Concomitant]
     Active Substance: MEMANTINE
  5. FLUOXETINE [Concomitant]
     Active Substance: FLUOXETINE HYDROCHLORIDE
  6. NUPLAZID [Suspect]
     Active Substance: PIMAVANSERIN TARTRATE
     Indication: PARKINSON^S DISEASE PSYCHOSIS
     Dosage: 34 MILLIGRAM, QD
     Route: 048
     Dates: start: 202003, end: 202004
  7. NUPLAZID [Suspect]
     Active Substance: PIMAVANSERIN TARTRATE
     Indication: HALLUCINATION
     Dosage: 34 MILLIGRAM, QD EVERY MORNING
     Route: 048
     Dates: start: 20200522
  8. CLONAZEPAM. [Concomitant]
     Active Substance: CLONAZEPAM
  9. RIVASTIGMINE. [Concomitant]
     Active Substance: RIVASTIGMINE

REACTIONS (6)
  - Derealisation [Recovered/Resolved]
  - Pneumonia aspiration [Unknown]
  - Hallucination [Unknown]
  - Confusional state [Unknown]
  - Adverse drug reaction [Unknown]
  - Confusional state [Recovered/Resolved]

NARRATIVE: CASE EVENT DATE: 2020
